FAERS Safety Report 23192102 (Version 1)
Quarter: 2023Q4

REPORT INFORMATION
  Report Type: Spontaneous
  Country: US (occurrence: None)
  Receive Date: 20231115
  Receipt Date: 20231115
  Transmission Date: 20240110
  Serious: Yes (Other)
  Sender: FDA-Public Use
  Company Number: None

PATIENT
  Age: 32 Year
  Sex: Female
  Weight: 60.75 kg

DRUGS (2)
  1. TRAMETINIB [Suspect]
     Active Substance: TRAMETINIB
     Indication: Astrocytoma, low grade
     Dosage: FREQUENCY : DAILY;?
     Route: 048
     Dates: start: 20230926, end: 20231001
  2. VEMURAFENIB [Suspect]
     Active Substance: VEMURAFENIB
     Indication: Astrocytoma, low grade
     Dosage: FREQUENCY : TWICE A DAY;?
     Route: 048
     Dates: start: 20230926, end: 20231001

REACTIONS (1)
  - Serum sickness [None]

NARRATIVE: CASE EVENT DATE: 20231024
